FAERS Safety Report 15008209 (Version 1)
Quarter: 2018Q2

REPORT INFORMATION
  Report Type: Spontaneous
  Country: US (occurrence: US)
  Receive Date: 20180613
  Receipt Date: 20180613
  Transmission Date: 20180711
  Serious: No
  Sender: FDA-Public Use
  Company Number: US-009507513-1806USA005699

PATIENT
  Sex: Female

DRUGS (1)
  1. NUVARING [Suspect]
     Active Substance: ETHINYL ESTRADIOL\ETONOGESTREL
     Dosage: 1 RING  / ON WEEK 4
     Route: 067

REACTIONS (3)
  - Incorrect drug administration duration [Unknown]
  - Intentional medical device removal by patient [Unknown]
  - Vaginal haemorrhage [Unknown]
